FAERS Safety Report 5819873-0 (Version None)
Quarter: 2008Q3

REPORT INFORMATION
  Report Type: 
  Country: None (occurrence: None)
  Receive Date: 20080723
  Receipt Date: 20080717
  Transmission Date: 20090109
  Serious: Yes (Hospitalization)
  Sender: FDA-Public Use
  Company Number: VE-MERCK-0807VEN00001

PATIENT
  Age: 11 Year
  Sex: Male

DRUGS (2)
  1. SINGULAIR [Suspect]
     Indication: BRONCHIAL HYPERREACTIVITY
     Route: 048
     Dates: start: 20080606, end: 20080711
  2. CETIRIZINE HYDROCHLORIDE [Concomitant]
     Route: 048

REACTIONS (4)
  - AGGRESSION [None]
  - ANXIETY [None]
  - DROWNING [None]
  - FEAR [None]
